FAERS Safety Report 23915167 (Version 1)
Quarter: 2024Q2

REPORT INFORMATION
  Report Type: Spontaneous
  Country: US (occurrence: None)
  Receive Date: 20240529
  Receipt Date: 20240529
  Transmission Date: 20240716
  Serious: No
  Sender: FDA-Public Use
  Company Number: None

PATIENT
  Age: 59 Year
  Sex: Male
  Weight: 124.6 kg

DRUGS (1)
  1. VYXEOS [Suspect]
     Active Substance: CYTARABINE\DAUNORUBICIN
     Dates: end: 20240505

REACTIONS (13)
  - Leukopenia [None]
  - Febrile neutropenia [None]
  - Thrombocytopenia [None]
  - Nodule [None]
  - Cellulitis [None]
  - Fungal infection [None]
  - Symptom recurrence [None]
  - Erythema [None]
  - Pyrexia [None]
  - Neutropenia [None]
  - Anaemia [None]
  - Hypertension [None]
  - Adverse drug reaction [None]

NARRATIVE: CASE EVENT DATE: 20240512
